FAERS Safety Report 17303451 (Version 1)
Quarter: 2020Q1

REPORT INFORMATION
  Report Type: Spontaneous
  Country: US (occurrence: US)
  Receive Date: 20200122
  Receipt Date: 20200122
  Transmission Date: 20200409
  Serious: No
  Sender: FDA-Public Use
  Company Number: US-INCYTE CORPORATION-2020IN000429

PATIENT

DRUGS (1)
  1. JAKAFI [Suspect]
     Active Substance: RUXOLITINIB
     Indication: ALOPECIA UNIVERSALIS
     Dosage: 25 MILLIGRAM, BID
     Route: 048
     Dates: start: 201911

REACTIONS (2)
  - Mood swings [Unknown]
  - Off label use [Unknown]
